FAERS Safety Report 8118491-1 (Version None)
Quarter: 2012Q1

REPORT INFORMATION
  Report Type: 
  Country: None (occurrence: None)
  Receive Date: 20120207
  Receipt Date: 20120203
  Transmission Date: 20120608
  Serious: Yes (Hospitalization, Other)
  Sender: FDA-Public Use
  Company Number: US-PFIZER INC-2012030794

PATIENT
  Sex: Male
  Weight: 80.726 kg

DRUGS (4)
  1. ACETYLSALICYLIC ACID [Concomitant]
     Dosage: UNK
  2. CORTISONE [Concomitant]
     Dosage: UNK
  3. TRICOR [Concomitant]
     Dosage: UNK
  4. LIPITOR [Suspect]
     Dosage: 40 MG, 1X/DAY
     Route: 048
     Dates: start: 20020101, end: 20110801

REACTIONS (3)
  - BLOOD TRIGLYCERIDES INCREASED [None]
  - ANEURYSM [None]
  - MYOCARDIAL INFARCTION [None]
